FAERS Safety Report 11283057 (Version 1)
Quarter: 2015Q3

REPORT INFORMATION
  Report Type: Spontaneous
  Country: US (occurrence: None)
  Receive Date: 20150716
  Receipt Date: 20150716
  Transmission Date: 20151125
  Serious: Yes (Other)
  Sender: FDA-Public Use
  Company Number: None

PATIENT
  Age: 74 Year
  Sex: Male
  Weight: 106.6 kg

DRUGS (13)
  1. LISINOPRIL. [Concomitant]
     Active Substance: LISINOPRIL
  2. ROPINIROLE. [Concomitant]
     Active Substance: ROPINIROLE
  3. MINI ASPIRIN [Concomitant]
  4. ROPINIROLE. [Suspect]
     Active Substance: ROPINIROLE
     Indication: PARKINSONISM
  5. FUROSEMIDE. [Concomitant]
     Active Substance: FUROSEMIDE
  6. TERAZOSIN [Concomitant]
     Active Substance: TERAZOSIN\TERAZOSIN HYDROCHLORIDE
  7. LIPITOR [Concomitant]
     Active Substance: ATORVASTATIN CALCIUM
  8. CITALOPRAM [Concomitant]
     Active Substance: CITALOPRAM HYDROBROMIDE
  9. POTASSIUM CL [Concomitant]
     Active Substance: POTASSIUM CHLORIDE
  10. CARB/LEVO [Concomitant]
     Active Substance: CARBIDOPA\LEVODOPA
  11. ROPINIROLE. [Suspect]
     Active Substance: ROPINIROLE
     Indication: RESTLESS LEGS SYNDROME
  12. METOPROLOL TART [Concomitant]
     Active Substance: METOPROLOL TARTRATE
  13. FIDEDIPINE [Concomitant]

REACTIONS (1)
  - Sleep disorder [None]
